FAERS Safety Report 25252183 (Version 1)
Quarter: 2025Q2

REPORT INFORMATION
  Report Type: Spontaneous
  Country: KR (occurrence: KR)
  Receive Date: 20250429
  Receipt Date: 20250429
  Transmission Date: 20250716
  Serious: Yes (Other)
  Sender: VERITY PHARMACEUTICALS INC.
  Company Number: KR-VER-202500001

PATIENT
  Age: 10 Year
  Sex: Female

DRUGS (1)
  1. TRIPTORELIN PAMOATE [Suspect]
     Active Substance: TRIPTORELIN PAMOATE
     Indication: Menarche
     Route: 065

REACTIONS (4)
  - Off label use [Unknown]
  - Pityriasis rosea [Unknown]
  - Stevens-Johnson syndrome [Unknown]
  - Toxic epidermal necrolysis [Unknown]
